FAERS Safety Report 13155858 (Version 1)
Quarter: 2017Q1

REPORT INFORMATION
  Report Type: Spontaneous
  Country: US (occurrence: US)
  Receive Date: 20170126
  Receipt Date: 20170126
  Transmission Date: 20170428
  Serious: No
  Sender: FDA-Public Use
  Company Number: US-ROCHE-710976

PATIENT
  Age: 58 Year
  Sex: Male

DRUGS (5)
  1. DIAZEPAM. [Suspect]
     Active Substance: DIAZEPAM
     Dosage: MORE THAN THE RECOMMENDED DOSE
     Route: 048
  2. DIAZEPAM. [Suspect]
     Active Substance: DIAZEPAM
     Route: 048
  3. DIAZEPAM. [Suspect]
     Active Substance: DIAZEPAM
     Dosage: DOSE DECREASED
     Route: 048
  4. VALIUM [Suspect]
     Active Substance: DIAZEPAM
     Indication: ANXIETY
     Dosage: ADDITIONAL INDICATION ULCERATIVE COLITIS
     Route: 048
  5. DIAZEPAM. [Suspect]
     Active Substance: DIAZEPAM
     Indication: ANXIETY
     Dosage: ADDITIONAL INDICATION ULCERATIVE COLITIS
     Route: 048

REACTIONS (6)
  - Product physical issue [Unknown]
  - Diarrhoea [Unknown]
  - Drug ineffective [Unknown]
  - Product quality issue [Unknown]
  - Therapeutic response decreased [Unknown]
  - Abdominal pain [Unknown]

NARRATIVE: CASE EVENT DATE: 20100610
